FAERS Safety Report 8130301-5 (Version None)
Quarter: 2012Q1

REPORT INFORMATION
  Report Type: 
  Country: None (occurrence: None)
  Receive Date: 20120210
  Receipt Date: 20120207
  Transmission Date: 20120608
  Serious: Yes (Death, Hospitalization)
  Sender: FDA-Public Use
  Company Number: PHHY2012CH010654

PATIENT
  Sex: Female

DRUGS (11)
  1. CARDIPIN - SLOW RELEASE [Concomitant]
     Dosage: 40 MG, QD
     Route: 048
     Dates: start: 20100427
  2. ADALAT [Concomitant]
     Dosage: 20 MG, QD
     Dates: start: 20100406
  3. MAGNESIUM DIASPORAL [Concomitant]
     Dosage: 300 MG, QD
     Route: 048
     Dates: start: 20100614
  4. RASILEZ HCT [Suspect]
     Indication: HYPERTENSION
     Dosage: 150/12.5 MG DAILY
     Route: 048
     Dates: start: 20100309, end: 20100323
  5. CALCIMAGON FORTE [Concomitant]
     Dosage: 1 DF, QD
     Route: 048
     Dates: start: 20100817
  6. RASILEZ HCT [Suspect]
     Dosage: 300/25 MG
     Dates: start: 20100324, end: 20110117
  7. NITRODERM [Suspect]
     Dosage: 10MG/24HOUR
     Dates: start: 20110111
  8. OPTIDERM [Concomitant]
     Dosage: 2 DF, QD
     Route: 048
     Dates: start: 20100510
  9. RHEUMON [Concomitant]
     Dosage: 2 DF, QD
     Dates: start: 20100614
  10. PANTOPRAZOL NYCOMED [Concomitant]
     Dosage: 20 MG, QD
     Route: 048
  11. ACETAMINOPHEN [Concomitant]
     Dosage: 3 MG, QD
     Route: 048
     Dates: start: 20100510

REACTIONS (13)
  - ESCHERICHIA INFECTION [None]
  - VULVOVAGINAL MYCOTIC INFECTION [None]
  - DIARRHOEA [None]
  - GENERAL PHYSICAL HEALTH DETERIORATION [None]
  - FUNGAL INFECTION [None]
  - CONFUSIONAL STATE [None]
  - DEHYDRATION [None]
  - BRONCHOPNEUMONIA [None]
  - PSEUDOMONAS INFECTION [None]
  - RENAL FAILURE ACUTE [None]
  - ANURIA [None]
  - PYREXIA [None]
  - ANXIETY [None]
